FAERS Safety Report 18953138 (Version 5)
Quarter: 2023Q1

REPORT INFORMATION
  Report Type: Report from Study
  Country: US (occurrence: US)
  Receive Date: 20210301
  Receipt Date: 20230329
  Transmission Date: 20230418
  Serious: Yes (Hospitalization)
  Sender: FDA-Public Use
  Company Number: US-TAKEDA-2021TUS012708

PATIENT
  Sex: Female
  Weight: 63 kg

DRUGS (26)
  1. HUMAN IMMUNOGLOBULIN G [Suspect]
     Active Substance: HUMAN IMMUNOGLOBULIN G
     Indication: Chronic inflammatory demyelinating polyradiculoneuropathy
     Dosage: 40 GRAM, Q3WEEKS
     Route: 042
     Dates: start: 20190626
  2. HUMAN IMMUNOGLOBULIN G [Suspect]
     Active Substance: HUMAN IMMUNOGLOBULIN G
     Dosage: 40 GRAM, Q4WEEKS
     Route: 042
     Dates: start: 20190626
  3. HUMAN IMMUNOGLOBULIN G [Suspect]
     Active Substance: HUMAN IMMUNOGLOBULIN G
     Dosage: 60 GRAM, Q4WEEKS
     Route: 042
     Dates: start: 20190626
  4. ACETAMINOPHEN [Concomitant]
     Active Substance: ACETAMINOPHEN
  5. DIPHENHYDRAMINE [Concomitant]
     Active Substance: DIPHENHYDRAMINE
  6. SODIUM CHLORIDE [Concomitant]
     Active Substance: SODIUM CHLORIDE
  7. EPINEPHRINE [Concomitant]
     Active Substance: EPINEPHRINE
  8. LYSINE [Concomitant]
     Active Substance: LYSINE
  9. PREDNISONE [Concomitant]
     Active Substance: PREDNISONE
  10. PROPRANOLOL [Concomitant]
     Active Substance: PROPRANOLOL HYDROCHLORIDE
  11. TUMS ULTRA [Concomitant]
     Active Substance: CALCIUM CARBONATE
  12. CYANOCOBALAMIN [Concomitant]
     Active Substance: CYANOCOBALAMIN
  13. PROGESTERONE [Concomitant]
     Active Substance: PROGESTERONE
  14. GABAPENTIN [Concomitant]
     Active Substance: GABAPENTIN
  15. DEXILANT [Concomitant]
     Active Substance: DEXLANSOPRAZOLE
  16. BACLOFEN [Concomitant]
     Active Substance: BACLOFEN
  17. VITAMIN D2 [Concomitant]
     Active Substance: ERGOCALCIFEROL
  18. MINIVELLE [Concomitant]
     Active Substance: ESTRADIOL
  19. BENADRYL [Concomitant]
     Active Substance: DIPHENHYDRAMINE HYDROCHLORIDE
  20. TYLENOL [Concomitant]
     Active Substance: ACETAMINOPHEN
  21. LACTASE [Concomitant]
     Active Substance: LACTASE
     Route: 065
  22. PROPRANOLOL HYDROCHLORIDE [Concomitant]
     Active Substance: PROPRANOLOL HYDROCHLORIDE
  23. ZOFRAN [Concomitant]
     Active Substance: ONDANSETRON HYDROCHLORIDE
  24. VITAMIN D [Concomitant]
     Active Substance: VITAMIN D NOS
  25. HEPARIN [Concomitant]
     Active Substance: HEPARIN SODIUM
  26. PAROXETINE MESYLATE [Concomitant]
     Active Substance: PAROXETINE MESYLATE

REACTIONS (7)
  - Appendix disorder [Unknown]
  - Multiple allergies [Unknown]
  - Weight decreased [Unknown]
  - Nasopharyngitis [Unknown]
  - Skin irritation [Unknown]
  - Dermatitis contact [Unknown]
  - Rash [Unknown]
